FAERS Safety Report 17840866 (Version 1)
Quarter: 2020Q2

REPORT INFORMATION
  Report Type: Spontaneous
  Country: CN (occurrence: CN)
  Receive Date: 20200529
  Receipt Date: 20200529
  Transmission Date: 20200714
  Serious: Yes (Other)
  Sender: FDA-Public Use
  Company Number: CN-ACS-001718

PATIENT
  Age: 53 Year
  Sex: Male
  Weight: 65 kg

DRUGS (2)
  1. SEVOFLURANE. [Suspect]
     Active Substance: SEVOFLURANE
     Indication: GENERAL ANAESTHESIA
     Route: 065
  2. CEFAZOLIN [Suspect]
     Active Substance: CEFAZOLIN
     Indication: ANTIBIOTIC PROPHYLAXIS
     Dosage: INFUSION PRESSURE  0.5 G/L CEFAZOLIN AND SET AT 30 MM HG; LOCAL IRRIGATION
     Route: 050

REACTIONS (2)
  - Off label use [Recovered/Resolved]
  - Seizure [Recovered/Resolved]
